FAERS Safety Report 9168857 (Version 3)
Quarter: 2013Q2

REPORT INFORMATION
  Report Type: Spontaneous
  Country: US (occurrence: US)
  Receive Date: 20130318
  Receipt Date: 20130510
  Transmission Date: 20140414
  Serious: Yes (Hospitalization)
  Sender: FDA-Public Use
  Company Number: US-BAYER-2013-031241

PATIENT
  Age: 32 Year
  Sex: Female
  Weight: 99.77 kg

DRUGS (3)
  1. MIRENA [Suspect]
     Indication: CONTRACEPTION
     Dosage: 20 MCG/24HR, CONT
     Route: 015
     Dates: start: 20120725, end: 201301
  2. GLUCOPHAGE [Concomitant]
  3. DYAZIDE [Concomitant]

REACTIONS (10)
  - Genital haemorrhage [Recovered/Resolved]
  - Device expulsion [Recovered/Resolved]
  - Menorrhagia [None]
  - Abdominal pain [None]
  - Dysmenorrhoea [None]
  - Uterine cervical erosion [None]
  - Cervicitis cystic [None]
  - Cervical polyp [None]
  - Endometrial hyperplasia [None]
  - Adenomyosis [None]
